FAERS Safety Report 9671927 (Version 1)
Quarter: 2013Q4

REPORT INFORMATION
  Report Type: Spontaneous
  Country: NL (occurrence: None)
  Receive Date: 20131104
  Receipt Date: 20131104
  Transmission Date: 20140711
  Serious: Yes (Other)
  Sender: FDA-Public Use
  Company Number: AUR-APL-2013-09116

PATIENT
  Age: 84 Year
  Sex: Female

DRUGS (5)
  1. RISPERIDONE (RISPERIDONE) [Suspect]
     Indication: PRODUCT USED FOR UNKNOWN INDICATION
  2. ENALAPRIL [Suspect]
     Indication: PRODUCT USED FOR UNKNOWN INDICATION
  3. PRAXITEN PLIVA (OXAZEPAM) (OXAZEPAM) [Suspect]
     Indication: PRODUCT USED FOR UNKNOWN INDICATION
  4. TOLBUTAMIDE [Suspect]
     Indication: PRODUCT USED FOR UNKNOWN INDICATION
  5. NORTRIPTYLINE (NORTRIPTYLINE) [Suspect]
     Indication: ANTIDEPRESSANT THERAPY
     Dosage: 1 D, UNKNOWN

REACTIONS (4)
  - Hyponatraemia [None]
  - Inappropriate antidiuretic hormone secretion [None]
  - Hyperglycaemia [None]
  - Hypovolaemia [None]
